FAERS Safety Report 8022164-3 (Version None)
Quarter: 2012Q1

REPORT INFORMATION
  Report Type: 
  Country: None (occurrence: None)
  Receive Date: 20120104
  Receipt Date: 20111229
  Transmission Date: 20120608
  Serious: Yes (Other)
  Sender: FDA-Public Use
  Company Number: DE-PFIZER INC-2012001670

PATIENT
  Age: 33 Year
  Sex: Female
  Weight: 85 kg

DRUGS (3)
  1. ZOLOFT [Suspect]
     Indication: DEPRESSION
     Dosage: 150 MG, 1X/DAY
     Route: 048
     Dates: start: 20100511, end: 20100802
  2. ZOLOFT [Suspect]
     Dosage: 100 MG, 1X/DAY
     Route: 048
     Dates: start: 20100803, end: 20110203
  3. PENICILLIN NOS [Concomitant]
     Indication: BRONCHITIS
     Route: 064

REACTIONS (2)
  - OLIGOHYDRAMNIOS [None]
  - CAESAREAN SECTION [None]
